FAERS Safety Report 23509153 (Version 1)
Quarter: 2024Q1

REPORT INFORMATION
  Report Type: Report from Study
  Country: US (occurrence: US)
  Receive Date: 20240210
  Receipt Date: 20240210
  Transmission Date: 20240410
  Serious: Yes (Hospitalization, Other)
  Sender: FDA-Public Use
  Company Number: US-ABBVIE-5627445

PATIENT
  Sex: Female

DRUGS (1)
  1. HUMIRA [Suspect]
     Active Substance: ADALIMUMAB
     Indication: Colitis ulcerative
     Route: 058

REACTIONS (9)
  - Haemorrhage [Recovered/Resolved]
  - Oropharyngeal pain [Unknown]
  - Rectal prolapse [Recovered/Resolved]
  - Hip surgery [Recovered/Resolved]
  - Weight decreased [Recovering/Resolving]
  - Therapeutic product effect decreased [Unknown]
  - Alopecia [Recovering/Resolving]
  - Hip surgery [Recovered/Resolved]
  - Appetite disorder [Unknown]

NARRATIVE: CASE EVENT DATE: 20230501
